FAERS Safety Report 5444574-0 (Version None)
Quarter: 2007Q3

REPORT INFORMATION
  Report Type: 
  Country: None (occurrence: None)
  Receive Date: 20070906
  Receipt Date: 20070829
  Transmission Date: 20080115
  Serious: Yes (Hospitalization)
  Sender: FDA-Public Use
  Company Number: CH-SANOFI-SYNTHELABO-A01200709242

PATIENT
  Sex: Female

DRUGS (7)
  1. ARANESP [Concomitant]
     Route: 058
     Dates: start: 20070730
  2. VITARUBIN [Concomitant]
     Route: 030
     Dates: start: 20070730
  3. NAVOBAN [Concomitant]
     Route: 042
     Dates: start: 20070730
  4. VENOFER [Concomitant]
     Route: 042
     Dates: start: 20070730
  5. SOLU-MEDROL [Concomitant]
  6. CAPECITABINE [Concomitant]
     Route: 065
     Dates: start: 20070401, end: 20070101
  7. ELOXATIN [Suspect]
     Indication: COLORECTAL CANCER METASTATIC
     Route: 042
     Dates: start: 20070730, end: 20070730

REACTIONS (4)
  - ASTHENIA [None]
  - EYELID PTOSIS [None]
  - IIIRD NERVE PARESIS [None]
  - VISION BLURRED [None]
